FAERS Safety Report 13117851 (Version 2)
Quarter: 2017Q2

REPORT INFORMATION
  Report Type: Spontaneous
  Country: US (occurrence: US)
  Receive Date: 20170116
  Receipt Date: 20170406
  Transmission Date: 20170830
  Serious: No
  Sender: FDA-Public Use
  Company Number: US-JNJFOC-20170104053

PATIENT
  Sex: Male

DRUGS (6)
  1. RISPERDAL [Suspect]
     Active Substance: RISPERIDONE
     Indication: ATTENTION DEFICIT/HYPERACTIVITY DISORDER
     Dosage: IN VARYING DOSES OF 0.25 MG, 0.5 MG, 0.75 MG , 1 MG, 1.5 MG AND 2 MG.
     Route: 048
     Dates: start: 2008, end: 2009
  2. RISPERDAL [Suspect]
     Active Substance: RISPERIDONE
     Indication: AFFECTIVE DISORDER
     Dosage: IN VARYING DOSES OF 0.25 MG, 0.5 MG, 0.75 MG , 1 MG, 1.5 MG AND 2 MG.
     Route: 048
     Dates: start: 2008, end: 2009
  3. RISPERIDONE. [Suspect]
     Active Substance: RISPERIDONE
     Indication: PRODUCT USED FOR UNKNOWN INDICATION
     Route: 048
  4. RISPERDAL [Suspect]
     Active Substance: RISPERIDONE
     Indication: ANGER
     Dosage: IN VARYING DOSES OF 0.25 MG, 0.5 MG, 0.75 MG , 1 MG, 1.5 MG AND 2 MG.
     Route: 048
     Dates: start: 2008, end: 2009
  5. RISPERDAL [Suspect]
     Active Substance: RISPERIDONE
     Indication: BIPOLAR DISORDER
     Dosage: IN VARYING DOSES OF 0.25 MG, 0.5 MG, 0.75 MG , 1 MG, 1.5 MG AND 2 MG.
     Route: 048
     Dates: start: 2008, end: 2009
  6. RISPERDAL [Suspect]
     Active Substance: RISPERIDONE
     Indication: OPPOSITIONAL DEFIANT DISORDER
     Dosage: IN VARYING DOSES OF 0.25 MG, 0.5 MG, 0.75 MG , 1 MG, 1.5 MG AND 2 MG.
     Route: 048
     Dates: start: 2008, end: 2009

REACTIONS (4)
  - Overweight [Unknown]
  - Gynaecomastia [Unknown]
  - Hypersomnia [Unknown]
  - Enuresis [Unknown]

NARRATIVE: CASE EVENT DATE: 2008
